FAERS Safety Report 9415727 (Version 2)
Quarter: 2013Q4

REPORT INFORMATION
  Report Type: Spontaneous
  Country: DK (occurrence: DK)
  Receive Date: 20130723
  Receipt Date: 20131126
  Transmission Date: 20140711
  Serious: Yes (Hospitalization, Other)
  Sender: FDA-Public Use
  Company Number: DK-MERCK-1307DNK011261

PATIENT
  Age: 29 Year
  Sex: Male
  Weight: 67 kg

DRUGS (1)
  1. SINGULAIR [Suspect]
     Indication: ASTHMA
     Dosage: STRENGTH: 10 MG.
     Route: 048
     Dates: start: 20060814, end: 20130418

REACTIONS (9)
  - Muscle tightness [Recovering/Resolving]
  - Claustrophobia [Recovering/Resolving]
  - Amnesia [Recovering/Resolving]
  - Suicide attempt [Recovering/Resolving]
  - Arthralgia [Recovering/Resolving]
  - Muscle spasms [Recovering/Resolving]
  - Insomnia [Recovering/Resolving]
  - Depression [Recovering/Resolving]
  - Fatigue [Recovering/Resolving]
